FAERS Safety Report 12862240 (Version 1)
Quarter: 2016Q4

REPORT INFORMATION
  Report Type: Spontaneous
  Country: US (occurrence: US)
  Receive Date: 20161018
  Receipt Date: 20161018
  Transmission Date: 20170207
  Serious: No
  Sender: FDA-Public Use
  Company Number: None

PATIENT
  Age: 47 Year
  Sex: Female

DRUGS (1)
  1. GLEEVEC [Suspect]
     Active Substance: IMATINIB MESYLATE
     Indication: MYELOID LEUKAEMIA

REACTIONS (5)
  - Platelet count decreased [None]
  - Drug ineffective [None]
  - Blood count abnormal [None]
  - Fatigue [None]
  - Haemoglobin decreased [None]

NARRATIVE: CASE EVENT DATE: 20160824
